FAERS Safety Report 19998744 (Version 1)
Quarter: 2021Q4

REPORT INFORMATION
  Report Type: Spontaneous
  Country: US (occurrence: US)
  Receive Date: 20211026
  Receipt Date: 20211026
  Transmission Date: 20220303
  Serious: No
  Sender: FDA-Public Use
  Company Number: US-PFIZER INC-202101141103

PATIENT
  Age: 62 Year
  Sex: Male

DRUGS (5)
  1. XELJANZ [Suspect]
     Active Substance: TOFACITINIB CITRATE
     Indication: Rheumatoid arthritis
     Dosage: 5 MG, 1X/DAY
     Dates: start: 2020
  2. XELJANZ [Suspect]
     Active Substance: TOFACITINIB CITRATE
     Indication: Organ donor
     Dosage: 5 MG, 2X/DAY
     Route: 048
     Dates: start: 2020
  3. FOSAMAX [Concomitant]
     Active Substance: ALENDRONATE SODIUM
     Dosage: UNK
  4. METHOTREXATE SODIUM [Concomitant]
     Active Substance: METHOTREXATE SODIUM
     Dosage: UNK
  5. METHOTREXATE SODIUM [Concomitant]
     Active Substance: METHOTREXATE SODIUM
     Dosage: UNK (DOSE CUT TO 4 PILLS WEEKLY FROM 8 PILLS PER PATIENT)

REACTIONS (6)
  - Drug ineffective [Unknown]
  - Product use in unapproved indication [Unknown]
  - Peripheral swelling [Recovering/Resolving]
  - Deformity [Not Recovered/Not Resolved]
  - Discouragement [Unknown]
  - Depressed mood [Unknown]

NARRATIVE: CASE EVENT DATE: 20200101
